FAERS Safety Report 9097137 (Version 1)
Quarter: 2013Q1

REPORT INFORMATION
  Report Type: Spontaneous
  Country: US (occurrence: US)
  Receive Date: 20130212
  Receipt Date: 20130212
  Transmission Date: 20140127
  Serious: Yes (Other)
  Sender: FDA-Public Use
  Company Number: US-RB-049725-13

PATIENT
  Age: 36 Year
  Sex: Female

DRUGS (2)
  1. SUBUTEX [Suspect]
     Indication: PRODUCT USED FOR UNKNOWN INDICATION
     Route: 065
     Dates: start: 20110910
  2. PROGESTERONE [Suspect]
     Indication: PREGNANCY
     Route: 065
     Dates: start: 201207, end: 20120901

REACTIONS (2)
  - Exposure during pregnancy [Recovered/Resolved]
  - Abortion spontaneous [Recovered/Resolved]
